FAERS Safety Report 8569244-1 (Version None)
Quarter: 2012Q3

REPORT INFORMATION
  Report Type: 
  Country: None (occurrence: None)
  Receive Date: 20120803
  Receipt Date: 20120227
  Transmission Date: 20120928
  Serious: No
  Sender: FDA-Public Use
  Company Number: US-ABBOTT-12P-163-0909005-00

PATIENT
  Sex: Male
  Weight: 79.904 kg

DRUGS (5)
  1. SIMVASTATIN [Concomitant]
     Indication: PRODUCT USED FOR UNKNOWN INDICATION
     Dosage: 1 IN 1 DAY AT 9 PM
  2. WARFARIN SODIUM [Concomitant]
     Indication: PRODUCT USED FOR UNKNOWN INDICATION
     Dosage: 1 IN 1 DAY AT 6 PM
  3. NIASPAN [Suspect]
     Indication: HIGH DENSITY LIPOPROTEIN
     Dosage: 1 IN 1 DAY AT 4 AM
     Route: 048
  4. DILTIAZEM [Concomitant]
     Indication: PRODUCT USED FOR UNKNOWN INDICATION
     Dosage: 1 IN 1 DAY AT 6 PM
  5. PROPAFENONE HCL [Concomitant]
     Indication: PRODUCT USED FOR UNKNOWN INDICATION
     Dosage: 1 IN 12 HOURS (AT 6 AM AND 6 PM)

REACTIONS (1)
  - FLUSHING [None]
